FAERS Safety Report 8765685 (Version 22)
Quarter: 2015Q3

REPORT INFORMATION
  Report Type: Report from Study
  Country: CA (occurrence: CA)
  Receive Date: 20120904
  Receipt Date: 20150825
  Transmission Date: 20151125
  Serious: No
  Sender: FDA-Public Use
  Company Number: PHHY2012CA075712

PATIENT
  Age: 61 Year
  Sex: Male

DRUGS (2)
  1. SANDOSTATIN LAR DEPOT [Suspect]
     Active Substance: OCTREOTIDE ACETATE
     Indication: CARCINOID TUMOUR
     Dosage: 30 MG, QMO
     Route: 030
     Dates: start: 20120829
  2. SANDOSTATIN [Suspect]
     Active Substance: OCTREOTIDE ACETATE
     Indication: CARCINOID TUMOUR
     Dosage: UNK
     Route: 058
     Dates: start: 20120828

REACTIONS (26)
  - Muscle spasms [Not Recovered/Not Resolved]
  - Weight decreased [Unknown]
  - Peripheral swelling [Not Recovered/Not Resolved]
  - Erythema [Not Recovered/Not Resolved]
  - Glycosylated haemoglobin increased [Unknown]
  - Depression [Unknown]
  - Urinary tract disorder [Recovering/Resolving]
  - Hypersensitivity [Not Recovered/Not Resolved]
  - Visual impairment [Unknown]
  - Liver function test abnormal [Recovered/Resolved]
  - Injection site pain [Not Recovered/Not Resolved]
  - Nausea [Not Recovered/Not Resolved]
  - Diarrhoea [Recovering/Resolving]
  - Stress [Not Recovered/Not Resolved]
  - Defaecation urgency [Recovering/Resolving]
  - Asthenia [Unknown]
  - Urine output increased [Recovering/Resolving]
  - Eczema [Not Recovered/Not Resolved]
  - Flank pain [Not Recovered/Not Resolved]
  - Micturition urgency [Recovering/Resolving]
  - Abdominal discomfort [Recovering/Resolving]
  - Incontinence [Unknown]
  - Fatigue [Not Recovered/Not Resolved]
  - Arthralgia [Unknown]
  - Blister [Not Recovered/Not Resolved]
  - Glucose tolerance impaired [Unknown]

NARRATIVE: CASE EVENT DATE: 20120828
